FAERS Safety Report 14579459 (Version 5)
Quarter: 2020Q3

REPORT INFORMATION
  Report Type: Spontaneous
  Country: US (occurrence: US)
  Receive Date: 20180227
  Receipt Date: 20200822
  Transmission Date: 20201102
  Serious: Yes (Death, Hospitalization)
  Sender: FDA-Public Use
  Company Number: US-ACTELION-A-NJ2018-167875

PATIENT
  Age: 72 Year
  Sex: Female

DRUGS (14)
  1. ADCIRCA [Suspect]
     Active Substance: TADALAFIL
     Indication: PRODUCT USED FOR UNKNOWN INDICATION
     Dosage: 40 MG, QD
     Route: 065
     Dates: start: 20171012
  2. LOPRESSOR [Concomitant]
     Active Substance: METOPROLOL TARTRATE
     Dosage: 50 MG, BID
  3. ADVAIR HFA [Concomitant]
     Active Substance: FLUTICASONE PROPIONATE\SALMETEROL XINAFOATE
     Dosage: 1 PUFF 2X DAY
     Dates: start: 2016
  4. HYDROCODONE [Concomitant]
     Active Substance: HYDROCODONE
     Dosage: 5/325 2X DAY AS NEEDED
     Dates: start: 2016
  5. CALCIUM CARBONATE. [Concomitant]
     Active Substance: CALCIUM CARBONATE
     Dosage: 500 MG, BID
     Dates: start: 2016
  6. COQ10 [Concomitant]
     Active Substance: UBIDECARENONE
     Dosage: 10 MG, QD
     Dates: start: 2016
  7. IRON [Concomitant]
     Active Substance: IRON
     Dosage: 324 MG, TID
     Dates: start: 2016
  8. LIPITOR [Concomitant]
     Active Substance: ATORVASTATIN CALCIUM
     Dosage: 10 MG, QD
     Dates: start: 2016
  9. LASIX [Concomitant]
     Active Substance: FUROSEMIDE
     Dosage: 20 MG, BID
     Dates: start: 2016
  10. PAXIL [Concomitant]
     Active Substance: PAROXETINE HYDROCHLORIDE
     Dosage: 10 MG, BID
     Dates: start: 2017
  11. ASPIRIN. [Concomitant]
     Active Substance: ASPIRIN
     Dosage: 81 MG, QD
     Dates: start: 2016
  12. OPSUMIT [Suspect]
     Active Substance: MACITENTAN
     Indication: PULMONARY ARTERIAL HYPERTENSION
     Dosage: 10 MG, QD
     Route: 048
     Dates: start: 20180119
  13. PROTONIX [Concomitant]
     Active Substance: PANTOPRAZOLE SODIUM
     Dosage: 40 MG, BID
     Dates: start: 2016
  14. POTASSIUM CHLORIDE. [Concomitant]
     Active Substance: POTASSIUM CHLORIDE
     Dosage: 10 MEQ, BID
     Dates: start: 2017

REACTIONS (7)
  - Death [Fatal]
  - Fall [Unknown]
  - Dizziness [Unknown]
  - Hospitalisation [Unknown]
  - Dyspnoea exertional [Not Recovered/Not Resolved]
  - Feeling abnormal [Unknown]
  - Pain [Unknown]

NARRATIVE: CASE EVENT DATE: 20180214
